FAERS Safety Report 4416110-9 (Version None)
Quarter: 2004Q3

REPORT INFORMATION
  Report Type: 
  Country: None (occurrence: None)
  Receive Date: 20040802
  Receipt Date: 20040721
  Transmission Date: 20050211
  Serious: Yes (Hospitalization)
  Sender: FDA-Public Use
  Company Number: 2004-07-0970

PATIENT
  Age: 64 Year
  Sex: Male

DRUGS (6)
  1. CLARITIN [Suspect]
     Dosage: ORAL
     Route: 048
     Dates: end: 20040611
  2. FERROUS SULFATE TAB [Suspect]
     Dosage: ORAL
     Route: 048
     Dates: end: 20040611
  3. RANITIDINE HCL [Suspect]
     Dosage: ORAL
     Route: 048
     Dates: end: 20040611
  4. KARDEGIC SACHETS (ACETYLSALICYLATE LYSINE) STANDARD POWDER [Suspect]
     Dosage: ORAL
     Route: 048
     Dates: end: 20040611
  5. LASILIX TABLETS [Concomitant]
  6. CORDARONE [Concomitant]

REACTIONS (1)
  - AGRANULOCYTOSIS [None]
